FAERS Safety Report 12530318 (Version 2)
Quarter: 2016Q3

REPORT INFORMATION
  Report Type: Spontaneous
  Country: US (occurrence: US)
  Receive Date: 20160706
  Receipt Date: 20160816
  Transmission Date: 20161109
  Serious: No
  Sender: FDA-Public Use
  Company Number: US-ASTRAZENECA-2016SE59708

PATIENT
  Age: 23835 Day
  Sex: Female
  Weight: 70.3 kg

DRUGS (2)
  1. OTC SINUS MEDICINE [Concomitant]
     Indication: SINUS DISORDER
  2. PULMICORT FLEXHALER [Suspect]
     Active Substance: BUDESONIDE
     Indication: ASTHMA
     Dosage: 180 MCG 225 MG,TWO TIMES A DAY
     Route: 055
     Dates: start: 20160515

REACTIONS (6)
  - Product quality issue [Unknown]
  - Drug dose omission [Unknown]
  - Chest discomfort [Unknown]
  - Wheezing [Unknown]
  - Intentional product misuse [Unknown]
  - Device issue [Unknown]

NARRATIVE: CASE EVENT DATE: 20160526
